FAERS Safety Report 10421781 (Version 1)
Quarter: 2014Q3

REPORT INFORMATION
  Report Type: Spontaneous
  Country: NL (occurrence: NL)
  Receive Date: 20140901
  Receipt Date: 20140901
  Transmission Date: 20150326
  Serious: Yes (Hospitalization)
  Sender: FDA-Public Use
  Company Number: NL-BRISTOL-MYERS SQUIBB COMPANY-21330634

PATIENT
  Age: 72 Year
  Sex: Female

DRUGS (17)
  1. REMERON [Concomitant]
     Active Substance: MIRTAZAPINE
  2. RIVASTIGMINE [Concomitant]
     Active Substance: RIVASTIGMINE
  3. SELOKEEN [Concomitant]
     Active Substance: METOPROLOL
  4. SINGULAIR [Concomitant]
     Active Substance: MONTELUKAST SODIUM
  5. FUCITHALMIC [Concomitant]
  6. BUDENOSIDE [Concomitant]
  7. FORXIGA [Suspect]
     Active Substance: DAPAGLIFLOZIN
     Indication: TYPE 2 DIABETES MELLITUS
  8. CANDESARTAN [Suspect]
     Active Substance: CANDESARTAN
     Indication: HYPERTENSION
     Dates: start: 2013
  9. RABEPRAZOLE SODIUM. [Concomitant]
     Active Substance: RABEPRAZOLE SODIUM
  10. AERIUS [Concomitant]
     Active Substance: DESLORATADINE
  11. JANUMET [Concomitant]
     Active Substance: METFORMIN HYDROCHLORIDE\SITAGLIPTIN PHOSPHATE
  12. VALDOXAN [Concomitant]
     Active Substance: AGOMELATINE
  13. NITROGLYCERINE [Concomitant]
     Active Substance: NITROGLYCERIN
  14. POVIDONE-IODINE. [Concomitant]
     Active Substance: POVIDONE-IODINE
  15. ATACAND [Concomitant]
     Active Substance: CANDESARTAN CILEXETIL
  16. COLECALCIFEROL [Concomitant]
     Active Substance: CHOLECALCIFEROL
  17. ATENOLOL. [Concomitant]
     Active Substance: ATENOLOL

REACTIONS (1)
  - Renal failure acute [Recovering/Resolving]

NARRATIVE: CASE EVENT DATE: 20140815
